FAERS Safety Report 16042281 (Version 2)
Quarter: 2019Q1

REPORT INFORMATION
  Report Type: Report from Study
  Country: None (occurrence: RO)
  Receive Date: 20190306
  Receipt Date: 20190311
  Transmission Date: 20190418
  Serious: Yes (Hospitalization, Other)
  Sender: FDA-Public Use
  Company Number: RO-ABBVIE-19S-135-2688775-00

PATIENT
  Age: 59 Year
  Sex: Female

DRUGS (7)
  1. RAMIPRIL. [Concomitant]
     Active Substance: RAMIPRIL
     Indication: HYPERTENSION
     Route: 048
     Dates: start: 20190212
  2. EXVIERA [Suspect]
     Active Substance: DASABUVIR
     Indication: HEPATIC CIRRHOSIS
  3. NEBILET [Concomitant]
     Active Substance: NEBIVOLOL
     Indication: HYPERTENSION
     Route: 048
     Dates: start: 201810
  4. VIEKIRAX [Suspect]
     Active Substance: OMBITASVIR\PARITAPREVIR\RITONAVIR
     Indication: HEPATITIS C
     Route: 048
     Dates: start: 20181018, end: 20181212
  5. TAROSIN [Concomitant]
     Indication: PRODUCT USED FOR UNKNOWN INDICATION
     Route: 048
     Dates: start: 20190212
  6. VIEKIRAX [Suspect]
     Active Substance: OMBITASVIR\PARITAPREVIR\RITONAVIR
     Indication: HEPATIC CIRRHOSIS
  7. EXVIERA [Suspect]
     Active Substance: DASABUVIR
     Indication: HEPATITIS C
     Route: 048
     Dates: start: 20181018, end: 20181212

REACTIONS (19)
  - Therapeutic response unexpected [Recovered/Resolved]
  - Anxiety disorder [Recovering/Resolving]
  - Cough [Recovered/Resolved]
  - Blood pressure increased [Recovered/Resolved]
  - Energy increased [Recovered/Resolved]
  - Pre-existing condition improved [Recovered/Resolved]
  - Ear discomfort [Recovered/Resolved]
  - Haemorrhagic stroke [Recovered/Resolved]
  - Chest pain [Recovered/Resolved]
  - Depression [Recovering/Resolving]
  - General physical health deterioration [Recovered/Resolved]
  - Respiratory tract infection viral [Recovered/Resolved]
  - Eye pain [Recovered/Resolved]
  - Discoloured vomit [Recovered/Resolved]
  - Headache [Recovered/Resolved]
  - Pain in extremity [Recovered/Resolved]
  - Pyrexia [Recovered/Resolved]
  - Vestibular disorder [Recovering/Resolving]
  - Insomnia [Recovered/Resolved]

NARRATIVE: CASE EVENT DATE: 201812
